FAERS Safety Report 12180434 (Version 1)
Quarter: 2016Q1

REPORT INFORMATION
  Report Type: Spontaneous
  Country: US (occurrence: US)
  Receive Date: 20160315
  Receipt Date: 20160315
  Transmission Date: 20160526
  Serious: No
  Sender: FDA-Public Use
  Company Number: JP-WARNER CHILCOTT 2013-000011

PATIENT
  Age: 61 Year
  Sex: Female

DRUGS (3)
  1. ESTRACE [Suspect]
     Active Substance: ESTRADIOL
     Indication: ATROPHIC VULVOVAGINITIS
     Route: 067
     Dates: start: 2012
  2. ESTRACE [Suspect]
     Active Substance: ESTRADIOL
     Route: 067
     Dates: start: 2012
  3. VICODIN [Concomitant]
     Active Substance: ACETAMINOPHEN\HYDROCODONE BITARTRATE

REACTIONS (5)
  - Rosacea [None]
  - Pain [None]
  - Acne [None]
  - Drug ineffective [None]
  - Pruritus [None]
